FAERS Safety Report 8572843-4 (Version None)
Quarter: 2012Q3

REPORT INFORMATION
  Report Type: 
  Country: None (occurrence: None)
  Receive Date: 20120806
  Receipt Date: 20120725
  Transmission Date: 20120928
  Serious: Yes (Other)
  Sender: FDA-Public Use
  Company Number: AU-ROCHE-1097438

PATIENT
  Sex: Female

DRUGS (6)
  1. XELODA [Suspect]
     Indication: BREAST CANCER
  2. EVEROLIMUS [Concomitant]
  3. NAVELBINE [Concomitant]
  4. HERCEPTIN [Suspect]
     Indication: BREAST CANCER
  5. TAXOTERE [Concomitant]
  6. TYKERB [Concomitant]

REACTIONS (1)
  - DISEASE PROGRESSION [None]
